FAERS Safety Report 25292416 (Version 1)
Quarter: 2025Q2

REPORT INFORMATION
  Report Type: Spontaneous
  Country: US (occurrence: US)
  Receive Date: 20250510
  Receipt Date: 20250510
  Transmission Date: 20250716
  Serious: No
  Sender: SANOFI AVENTIS
  Company Number: US-SA-2025SA123559

PATIENT
  Sex: Female
  Weight: 65.45 kg

DRUGS (12)
  1. KEVZARA [Suspect]
     Active Substance: SARILUMAB
     Indication: Rheumatoid arthritis
     Dosage: 200 MG, QOW
     Route: 058
  2. KEVZARA [Suspect]
     Active Substance: SARILUMAB
     Indication: Illness
  3. KEVZARA [Suspect]
     Active Substance: SARILUMAB
     Indication: Post procedural hypothyroidism
  4. KEVZARA [Suspect]
     Active Substance: SARILUMAB
     Indication: Peritonitis
  5. KEVZARA [Suspect]
     Active Substance: SARILUMAB
     Indication: Tobacco user
  6. HUMIRA [Concomitant]
     Active Substance: ADALIMUMAB
  7. BACLOFEN [Concomitant]
     Active Substance: BACLOFEN
  8. VITAMIN D NOS [Concomitant]
     Active Substance: CHOLECALCIFEROL\ERGOCALCIFEROL
  9. OMEPRAZOLE [Concomitant]
     Active Substance: OMEPRAZOLE
  10. ROSUVASTATIN CALCIUM [Concomitant]
     Active Substance: ROSUVASTATIN CALCIUM
  11. ALENDRONATE SODIUM [Concomitant]
     Active Substance: ALENDRONATE SODIUM
  12. ALENDRONATE SODIUM [Concomitant]
     Active Substance: ALENDRONATE SODIUM

REACTIONS (2)
  - Product use in unapproved indication [Unknown]
  - Drug ineffective [Unknown]
